FAERS Safety Report 8573221-4 (Version None)
Quarter: 2012Q3

REPORT INFORMATION
  Report Type: 
  Country: None (occurrence: None)
  Receive Date: 20120806
  Receipt Date: 20120731
  Transmission Date: 20120928
  Serious: Yes (Other)
  Sender: FDA-Public Use
  Company Number: GB-PFIZER INC-2012186401

PATIENT
  Sex: Female

DRUGS (1)
  1. LYRICA [Suspect]
     Indication: NEURALGIA
     Dosage: 150 MG, 1X/DAY
     Dates: start: 20110101, end: 20120101

REACTIONS (12)
  - ACTIVITIES OF DAILY LIVING IMPAIRED [None]
  - ANXIETY [None]
  - ABDOMINAL DISCOMFORT [None]
  - HYPERHIDROSIS [None]
  - EATING DISORDER SYMPTOM [None]
  - WEIGHT INCREASED [None]
  - DIARRHOEA [None]
  - WEIGHT DECREASED [None]
  - FEELING COLD [None]
  - MORBID THOUGHTS [None]
  - INSOMNIA [None]
  - FEELING ABNORMAL [None]
